FAERS Safety Report 7249148-7 (Version None)
Quarter: 2011Q1

REPORT INFORMATION
  Report Type: 
  Country: None (occurrence: None)
  Receive Date: 20110128
  Receipt Date: 20101115
  Transmission Date: 20110831
  Serious: Yes (Hospitalization)
  Sender: FDA-Public Use
  Company Number: US-BAYER-201026207NA

PATIENT
  Sex: Female
  Weight: 83 kg

DRUGS (14)
  1. YAZ [Suspect]
     Dosage: UNK UNK, UNK
     Route: 048
     Dates: start: 20090601, end: 20090922
  2. MAXAIR [Concomitant]
     Indication: ASTHMA
     Dates: start: 20090101
  3. ADVAIR [Concomitant]
     Indication: ASTHMA
     Dosage: 2 DF (DAILY DOSE), BID,
     Dates: start: 20050101
  4. PREDNISONE [Concomitant]
     Indication: COUGH
  5. YASMIN [Suspect]
     Indication: PREMENSTRUAL SYNDROME
     Route: 048
     Dates: start: 20031201, end: 20040115
  6. MAXAIR [Concomitant]
     Indication: MULTIPLE ALLERGIES
     Dates: start: 20080101
  7. YAZ [Suspect]
     Indication: PREMENSTRUAL SYNDROME
     Dosage: UNK UNK, UNK
     Route: 048
     Dates: start: 20080701, end: 20090301
  8. ZOLOFT [Concomitant]
     Indication: DEPRESSION
     Dosage: 50 MG (DAILY DOSE), ,
     Dates: start: 20080101
  9. ALBUTEROL SULFATE [Concomitant]
     Indication: MULTIPLE ALLERGIES
     Dosage: 2.5 MG (DAILY DOSE), ,
  10. PREDNISONE [Concomitant]
     Indication: WHEEZING
     Dosage: 20 MG (DAILY DOSE), ,
     Dates: start: 20090901, end: 20090908
  11. SINGULAIR [Concomitant]
     Indication: MULTIPLE ALLERGIES
     Dosage: 10 MG (DAILY DOSE), ,
     Dates: start: 20050101
  12. ALBUTEROL SULFATE [Concomitant]
     Indication: ASTHMA
  13. OVCON-35 [Concomitant]
     Dates: start: 20050101
  14. FLUOXETINE [Concomitant]
     Dates: start: 20050101

REACTIONS (1)
  - DEEP VEIN THROMBOSIS [None]
